FAERS Safety Report 5792383-5 (Version None)
Quarter: 2008Q2

REPORT INFORMATION
  Report Type: 
  Country: None (occurrence: None)
  Receive Date: 20080626
  Receipt Date: 20080618
  Transmission Date: 20081010
  Serious: Yes (Death, Hospitalization)
  Sender: FDA-Public Use
  Company Number: JP-ABBOTT-08P-087-0456922-00

PATIENT
  Age: 85 Year
  Sex: Male

DRUGS (3)
  1. LEUPROLIDE ACETATE [Suspect]
     Indication: PROSTATE CANCER STAGE II
     Route: 058
     Dates: start: 20060501, end: 20071001
  2. LEUPROLIDE ACETATE [Suspect]
     Dates: end: 20060418
  3. URAPIDIL [Concomitant]
     Indication: BENIGN PROSTATIC HYPERPLASIA
     Route: 048
     Dates: end: 20071014

REACTIONS (2)
  - CEREBRAL INFARCTION [None]
  - PNEUMONIA [None]
